FAERS Safety Report 12674375 (Version 1)
Quarter: 2016Q3

REPORT INFORMATION
  Report Type: Spontaneous
  Country: US (occurrence: US)
  Receive Date: 20160822
  Receipt Date: 20160822
  Transmission Date: 20161109
  Serious: No
  Sender: FDA-Public Use
  Company Number: US-BEH-2015056627

PATIENT
  Sex: Female
  Weight: 86.18 kg

DRUGS (15)
  1. EPIPEN [Concomitant]
     Active Substance: EPINEPHRINE
  2. DOXEPIN [Concomitant]
     Active Substance: DOXEPIN
  3. PREDNISONE. [Concomitant]
     Active Substance: PREDNISONE
  4. PENICILLIN [Concomitant]
     Active Substance: PENICILLIN
  5. ALBUTEROL. [Concomitant]
     Active Substance: ALBUTEROL
  6. ADVAIR HFA [Concomitant]
     Active Substance: FLUTICASONE PROPIONATE\SALMETEROL XINAFOATE
  7. LEVAQUIN [Concomitant]
     Active Substance: LEVOFLOXACIN
  8. DIPHENHYDRAMINE. [Concomitant]
     Active Substance: DIPHENHYDRAMINE
  9. LMX [Concomitant]
     Active Substance: LIDOCAINE
  10. AVELOX [Concomitant]
     Active Substance: MOXIFLOXACIN HYDROCHLORIDE
  11. OXYGEN. [Concomitant]
     Active Substance: OXYGEN
  12. XOPENEX [Concomitant]
     Active Substance: LEVALBUTEROL HYDROCHLORIDE
  13. SODIUM CHLORIDE. [Concomitant]
     Active Substance: SODIUM CHLORIDE
  14. ZEMAIRA [Suspect]
     Active Substance: .ALPHA.1-PROTEINASE INHIBITOR HUMAN
     Indication: ALPHA-1 ANTI-TRYPSIN DEFICIENCY
     Route: 042
  15. WARFARIN [Concomitant]
     Active Substance: WARFARIN

REACTIONS (1)
  - Nasopharyngitis [Unknown]
